FAERS Safety Report 9201410 (Version 2)
Quarter: 2013Q2

REPORT INFORMATION
  Report Type: Report from Study
  Country: BR (occurrence: BR)
  Receive Date: 20130401
  Receipt Date: 20130405
  Transmission Date: 20140414
  Serious: Yes (Other)
  Sender: FDA-Public Use
  Company Number: BR-AMGEN-BRACT2013021511

PATIENT
  Age: 65 Year
  Sex: Female
  Weight: 72 kg

DRUGS (7)
  1. ETANERCEPT [Suspect]
     Indication: RHEUMATOID ARTHRITIS
     Dosage: 50 MG, QWK
     Route: 042
     Dates: start: 20110105
  2. METHOTREXATE SODIUM [Concomitant]
     Dosage: UNK UNK, QWK
  3. PREDNISONE [Concomitant]
     Dosage: 7.5 MG, UNK
  4. PURAN T4 [Concomitant]
     Dosage: 100 MG, UNK
  5. FOLIC ACID [Concomitant]
     Dosage: STRENGTH 5 MG
  6. PARACETAMOL [Concomitant]
     Dosage: UNK UNK, 2 TIMES/WK
  7. CALCIUM [Concomitant]
     Dosage: UNK UNK, QD

REACTIONS (14)
  - Feeling abnormal [Unknown]
  - Ankle fracture [Unknown]
  - Visual impairment [Unknown]
  - Rash macular [Unknown]
  - Haematoma [Unknown]
  - Wheelchair user [Unknown]
  - Fall [Unknown]
  - Weight decreased [Unknown]
  - Body height decreased [Unknown]
  - Arthritis [Unknown]
  - Deep vein thrombosis [Unknown]
  - Nervousness [Unknown]
  - Incorrect route of drug administration [Unknown]
  - Anaemia [Unknown]
